FAERS Safety Report 14559085 (Version 4)
Quarter: 2020Q1

REPORT INFORMATION
  Report Type: Spontaneous
  Country: US (occurrence: US)
  Receive Date: 20180221
  Receipt Date: 20200114
  Transmission Date: 20200409
  Serious: Yes (Hospitalization)
  Sender: FDA-Public Use
  Company Number: US-ACTELION-A-US2018-167741

PATIENT
  Sex: Male
  Weight: 71.2 kg

DRUGS (5)
  1. VELETRI [Suspect]
     Active Substance: EPOPROSTENOL
     Dosage: 16 NG/KG, PER MIN
     Route: 042
  2. VELETRI [Suspect]
     Active Substance: EPOPROSTENOL
     Indication: PULMONARY ARTERIAL HYPERTENSION
     Dosage: 13.5 NG/KG, PER MIN
     Route: 042
  3. SILDENAFIL CITRATE. [Concomitant]
     Active Substance: SILDENAFIL CITRATE
  4. VELETRI [Suspect]
     Active Substance: EPOPROSTENOL
     Dosage: 17 NG/KG, PER MIN
     Route: 042
  5. ELIQUIS [Concomitant]
     Active Substance: APIXABAN

REACTIONS (8)
  - Therapy cessation [Unknown]
  - Catheter management [Unknown]
  - Syncope [Unknown]
  - Catheter site irritation [Unknown]
  - Device issue [Unknown]
  - Device dislocation [Unknown]
  - Hospitalisation [Unknown]
  - Catheter site pruritus [Unknown]
